FAERS Safety Report 7085316-5 (Version None)
Quarter: 2010Q4

REPORT INFORMATION
  Report Type: 
  Country: None (occurrence: None)
  Receive Date: 20101105
  Receipt Date: 20101026
  Transmission Date: 20110411
  Serious: Yes (Other)
  Sender: FDA-Public Use
  Company Number: CA-PFIZER INC-2010136055

PATIENT
  Age: 65 Year
  Sex: Female

DRUGS (4)
  1. LYRICA [Suspect]
     Indication: FIBROMYALGIA
     Dosage: 450 MG, (200MG IN THE MORNING AND 250MG AT BEDTIME)
     Dates: start: 20080101
  2. FLEXERIL [Concomitant]
     Dosage: UNK
  3. PLAVIX [Concomitant]
     Dosage: UNK
  4. CLONAZEPAM [Concomitant]
     Dosage: UNK

REACTIONS (4)
  - DIZZINESS [None]
  - SOMNOLENCE [None]
  - WEIGHT INCREASED [None]
  - WOUND [None]
